FAERS Safety Report 8111130-5 (Version None)
Quarter: 2012Q1

REPORT INFORMATION
  Report Type: 
  Country: None (occurrence: None)
  Receive Date: 20120203
  Receipt Date: 20110506
  Transmission Date: 20120608
  Serious: No
  Sender: FDA-Public Use
  Company Number: US-GLAXOSMITHKLINE-A0926392A

PATIENT
  Age: 46 Year
  Sex: Male

DRUGS (4)
  1. XANAX [Concomitant]
  2. PAROXETINE [Concomitant]
  3. TEMAZEPAM [Concomitant]
  4. LAMICTAL [Suspect]
     Indication: BIPOLAR DISORDER
     Dosage: 200MG PER DAY
     Route: 048
     Dates: start: 20110315

REACTIONS (1)
  - MUSCULOSKELETAL STIFFNESS [None]
